FAERS Safety Report 4799748-9 (Version None)
Quarter: 2005Q4

REPORT INFORMATION
  Report Type: 
  Country: None (occurrence: None)
  Receive Date: 20051011
  Receipt Date: 20051011
  Transmission Date: 20060501
  Serious: Yes (Hospitalization)
  Sender: FDA-Public Use
  Company Number: None

PATIENT
  Sex: Female
  Weight: 117.4816 kg

DRUGS (9)
  1. ADRIAMYCIN PFS [Suspect]
     Indication: BREAST CANCER
     Dosage: (THERAPY DATES: FRI. BEFORE ADMISSION)
  2. CYTOXAN [Suspect]
     Indication: BREAST CANCER
     Dosage: (THERAPY DATES:  FRI. BEFORE ADMISSION)
  3. DECADRON [Concomitant]
  4. ZOFRAN [Concomitant]
  5. COMPAZINE [Concomitant]
  6. TOPROL-XL [Concomitant]
  7. DIOVAN [Concomitant]
  8. COUMADIN [Concomitant]
  9. MAXZIDE [Concomitant]

REACTIONS (4)
  - DEHYDRATION [None]
  - NAUSEA [None]
  - PERFORMANCE STATUS DECREASED [None]
  - VOMITING [None]
